FAERS Safety Report 11862957 (Version 2)
Quarter: 2016Q1

REPORT INFORMATION
  Report Type: Spontaneous
  Country: US (occurrence: US)
  Receive Date: 20151223
  Receipt Date: 20160218
  Transmission Date: 20160526
  Serious: Yes (Hospitalization)
  Sender: FDA-Public Use
  Company Number: US-DRREDDYS-USA/USA/15/0054887

PATIENT
  Age: 27 Year
  Sex: Female

DRUGS (11)
  1. HABITROL [Suspect]
     Active Substance: NICOTINE
     Route: 062
  2. CLORAZEPATE [Suspect]
     Active Substance: CLORAZEPATE DIPOTASSIUM
     Indication: FRONTAL LOBE EPILEPSY
     Route: 065
  3. PHENYTOIN. [Suspect]
     Active Substance: PHENYTOIN
     Indication: FRONTAL LOBE EPILEPSY
     Route: 065
  4. LACOSAMIDE [Suspect]
     Active Substance: LACOSAMIDE
     Indication: FRONTAL LOBE EPILEPSY
     Route: 065
  5. LAMOTRIGINE TABLETS [Suspect]
     Active Substance: LAMOTRIGINE
     Indication: FRONTAL LOBE EPILEPSY
     Route: 065
  6. PREGABALIN. [Suspect]
     Active Substance: PREGABALIN
     Indication: FRONTAL LOBE EPILEPSY
     Route: 065
  7. ZONISAMIDE. [Suspect]
     Active Substance: ZONISAMIDE
     Indication: FRONTAL LOBE EPILEPSY
     Route: 065
  8. HABITROL [Suspect]
     Active Substance: NICOTINE
     Indication: FRONTAL LOBE EPILEPSY
     Route: 062
  9. ACETAZOLAMIDE. [Suspect]
     Active Substance: ACETAZOLAMIDE
     Indication: FRONTAL LOBE EPILEPSY
     Route: 065
  10. VALPROIC ACID. [Suspect]
     Active Substance: VALPROIC ACID
     Indication: FRONTAL LOBE EPILEPSY
     Route: 065
  11. LEVETIRACETAM. [Suspect]
     Active Substance: LEVETIRACETAM
     Indication: FRONTAL LOBE EPILEPSY
     Route: 065

REACTIONS (5)
  - Nausea [Unknown]
  - Product quality issue [Unknown]
  - Product use issue [Unknown]
  - Myalgia [Recovered/Resolved]
  - Drug ineffective [Unknown]
